FAERS Safety Report 12611707 (Version 1)
Quarter: 2016Q3

REPORT INFORMATION
  Report Type: Spontaneous
  Country: US (occurrence: US)
  Receive Date: 20160801
  Receipt Date: 20160801
  Transmission Date: 20161109
  Serious: No
  Sender: FDA-Public Use
  Company Number: US-MEDA-2016070088

PATIENT
  Age: 61 Year
  Sex: Male
  Weight: 127 kg

DRUGS (2)
  1. METFORMIN [Concomitant]
     Active Substance: METFORMIN HYDROCHLORIDE
     Indication: DIABETES MELLITUS
     Route: 048
  2. MUSE [Suspect]
     Active Substance: ALPROSTADIL
     Indication: ERECTILE DYSFUNCTION
     Route: 066
     Dates: start: 201607

REACTIONS (3)
  - Penile haemorrhage [Recovered/Resolved]
  - Erection increased [Recovered/Resolved]
  - Testicular pain [Recovered/Resolved]

NARRATIVE: CASE EVENT DATE: 201607
